FAERS Safety Report 6639324-6 (Version None)
Quarter: 2010Q1

REPORT INFORMATION
  Report Type: 
  Country: None (occurrence: None)
  Receive Date: 20100315
  Receipt Date: 20100303
  Transmission Date: 20100710
  Serious: Yes (Hospitalization, Disabling)
  Sender: FDA-Public Use
  Company Number: CIP10000115

PATIENT
  Age: 73 Year
  Sex: Female
  Weight: 73.9 kg

DRUGS (5)
  1. ACTONEL [Suspect]
     Indication: OSTEOPENIA
     Dosage: 35 MG ONCE DAILY, ORAL
     Route: 048
     Dates: start: 20050101, end: 20090901
  2. SYNTHROID [Concomitant]
  3. ALTACE [Concomitant]
  4. MAXZIDE [Concomitant]
  5. PRILOSEC /00661201/ (OMEPRAZOLE) [Concomitant]

REACTIONS (3)
  - COMPLICATED FRACTURE [None]
  - FEMUR FRACTURE [None]
  - PATHOLOGICAL FRACTURE [None]
